FAERS Safety Report 19200144 (Version 1)
Quarter: 2021Q2

REPORT INFORMATION
  Report Type: Report from Study
  Country: CA (occurrence: CA)
  Receive Date: 20210430
  Receipt Date: 20210430
  Transmission Date: 20210717
  Serious: Yes (Hospitalization)
  Sender: FDA-Public Use
  Company Number: NVSC2020CA201759

PATIENT
  Age: 53 Year
  Sex: Female

DRUGS (4)
  1. MAYZENT [Suspect]
     Active Substance: SIPONIMOD
     Indication: SECONDARY PROGRESSIVE MULTIPLE SCLEROSIS
     Dosage: 0.25 OT
     Route: 048
     Dates: start: 20200715
  2. LIORESAL [Suspect]
     Active Substance: BACLOFEN
     Dosage: 40 MG, QW (INSTEAD OF 30 MG)
     Route: 065
  3. LIORESAL [Suspect]
     Active Substance: BACLOFEN
     Dosage: 30 MG, QW5
     Route: 065
  4. LIORESAL [Suspect]
     Active Substance: BACLOFEN
     Indication: PRODUCT USED FOR UNKNOWN INDICATION
     Dosage: 50 MG, QW5
     Route: 065

REACTIONS (6)
  - Intestinal obstruction [Unknown]
  - Chromaturia [Unknown]
  - Nausea [Unknown]
  - Pain in extremity [Recovering/Resolving]
  - Hypertension [Unknown]
  - Fatigue [Unknown]

NARRATIVE: CASE EVENT DATE: 20200715
